FAERS Safety Report 6683814-7 (Version None)
Quarter: 2010Q2

REPORT INFORMATION
  Report Type: 
  Country: None (occurrence: None)
  Receive Date: 20100416
  Receipt Date: 20100408
  Transmission Date: 20101027
  Serious: Yes (Hospitalization)
  Sender: FDA-Public Use
  Company Number: US-RB-006966-10

PATIENT
  Age: 71 Year
  Sex: Male

DRUGS (6)
  1. MUCINEX [Suspect]
     Indication: RESPIRATORY TRACT CONGESTION
     Dosage: TAKEN 2 TABLETS EVERY 12 HOURS FOR 10 DAYS
     Route: 048
     Dates: start: 20100329
  2. MUCINEX [Suspect]
     Dosage: TOOK 1 TABLET OF PRODUCT EVER 12 HOURS
     Route: 048
     Dates: start: 20100325
  3. LASIX [Concomitant]
  4. ALBUTEROL [Concomitant]
  5. CISTINE [Concomitant]
  6. MUCINEX [Suspect]

REACTIONS (6)
  - CARDIAC DISORDER [None]
  - CARDIAC FAILURE CONGESTIVE [None]
  - CHEST PAIN [None]
  - CONSTIPATION [None]
  - INCORRECT DRUG ADMINISTRATION DURATION [None]
  - PALPITATIONS [None]
